FAERS Safety Report 11893531 (Version 6)
Quarter: 2016Q1

REPORT INFORMATION
  Report Type: Spontaneous
  Country: US (occurrence: US)
  Receive Date: 20160106
  Receipt Date: 20160229
  Transmission Date: 20160526
  Serious: Yes (Death, Hospitalization, Other)
  Sender: FDA-Public Use
  Company Number: US-PFIZER INC-2015478353

PATIENT
  Age: 64 Year
  Sex: Male
  Weight: 113 kg

DRUGS (31)
  1. INVOKANA [Concomitant]
     Active Substance: CANAGLIFLOZIN
     Indication: DIABETES MELLITUS
     Dosage: 300 MG, 1X/DAY
  2. ATORVASTATIN [Concomitant]
     Active Substance: ATORVASTATIN
     Dosage: 20 MG, UNK
     Dates: start: 20150918
  3. LEVOXYL [Concomitant]
     Active Substance: LEVOTHYROXINE SODIUM
     Dosage: 100 MG, 1X/DAY
  4. GLIPIZIDE. [Concomitant]
     Active Substance: GLIPIZIDE
     Dosage: 10 MG, UNK
     Dates: start: 20150918
  5. LEVOTHYROXINE. [Concomitant]
     Active Substance: LEVOTHYROXINE
     Dosage: 100 MG, UNK
     Dates: start: 20150918
  6. METFORMIN [Concomitant]
     Active Substance: METFORMIN HYDROCHLORIDE
     Dosage: 1000 MG, UNK
     Dates: start: 20150918
  7. TOPAMAX [Concomitant]
     Active Substance: TOPIRAMATE
     Dosage: UNK
  8. GABAPENTIN. [Concomitant]
     Active Substance: GABAPENTIN
     Dosage: 2 - 300 MG, 2X/DAY
  9. MIRTAZAPINE. [Concomitant]
     Active Substance: MIRTAZAPINE
     Dosage: 30 MG, UNK
     Dates: start: 20150918
  10. LOSARTAN. [Concomitant]
     Active Substance: LOSARTAN
     Dosage: 100 MG, DAILY
  11. VITAMIN D [Concomitant]
     Active Substance: CHOLECALCIFEROL
  12. MIRTAZAPINE. [Concomitant]
     Active Substance: MIRTAZAPINE
     Dosage: (15 AND 8 DAY)
  13. AZITHROMYCIN ANHYDROUS. [Suspect]
     Active Substance: AZITHROMYCIN ANHYDROUS
     Indication: PYREXIA
     Dosage: 250 MG, UNK
     Route: 048
     Dates: start: 20150919, end: 20150920
  14. GLUCOSINE [Concomitant]
  15. ATORVASTATIN [Concomitant]
     Active Substance: ATORVASTATIN
     Dosage: 20 MG, DAILY
  16. MIRTAZAPINE. [Concomitant]
     Active Substance: MIRTAZAPINE
     Dosage: 30 MG, DAILY (EVERY NIGHT AT BEDTIME)
  17. TOPIRAMATE. [Concomitant]
     Active Substance: TOPIRAMATE
     Dosage: 25 MG, UNK
     Dates: start: 20150918
  18. GLIPIZIDE. [Concomitant]
     Active Substance: GLIPIZIDE
     Indication: DIABETES MELLITUS
     Dosage: 10 MG, 1X/DAY
  19. FLUVOXAMINE [Concomitant]
     Active Substance: FLUVOXAMINE
     Dosage: 100 MG, UNK
     Dates: start: 20150918
  20. METFORMIN [Concomitant]
     Active Substance: METFORMIN HYDROCHLORIDE
     Dosage: 1000 MG, 2X/DAY
  21. FLUOXETINE [Concomitant]
     Active Substance: FLUOXETINE HYDROCHLORIDE
     Dosage: UNK
  22. AZITHROMYCIN ANHYDROUS. [Suspect]
     Active Substance: AZITHROMYCIN ANHYDROUS
     Indication: PNEUMONIA
  23. LOSARTAN. [Concomitant]
     Active Substance: LOSARTAN
     Dosage: 100 MG, UNK
     Dates: start: 20150918
  24. GABAPENTIN. [Concomitant]
     Active Substance: GABAPENTIN
     Dosage: 300 MG, UNK
     Dates: start: 20150918
  25. CLONAZEPAM. [Concomitant]
     Active Substance: CLONAZEPAM
     Dosage: 1 MG, UNK
     Dates: start: 20150918
  26. AZITHROMYCIN ANHYDROUS. [Suspect]
     Active Substance: AZITHROMYCIN ANHYDROUS
     Indication: COUGH
     Dosage: 250 MG, 2X/DAY
     Route: 048
     Dates: start: 20150918, end: 20150918
  27. INVOKANA [Concomitant]
     Active Substance: CANAGLIFLOZIN
     Dosage: 300 MG, UNK
     Dates: start: 20150918
  28. INVOKANA [Concomitant]
     Active Substance: CANAGLIFLOZIN
     Dosage: UNK
     Dates: end: 20150920
  29. METFORMIN [Concomitant]
     Active Substance: METFORMIN HYDROCHLORIDE
     Indication: DIABETES MELLITUS
     Dosage: 100 MG, 2X/DAY
  30. KLONOPIN [Concomitant]
     Active Substance: CLONAZEPAM
     Dosage: 1 MG SNS
  31. LUVOX [Concomitant]
     Active Substance: FLUVOXAMINE MALEATE
     Dosage: 100 MG, 1X/DAY

REACTIONS (23)
  - Pneumonia [Fatal]
  - Cardiomegaly [Unknown]
  - Hepatic steatosis [Unknown]
  - Nausea [Unknown]
  - Pyrexia [Unknown]
  - Pulmonary oedema [Unknown]
  - Cardiac disorder [Unknown]
  - Chest pain [Unknown]
  - Hepatic fibrosis [Unknown]
  - Vomiting [Unknown]
  - Diabetic complication [Fatal]
  - Drug ineffective [Unknown]
  - Gastrointestinal disorder [Unknown]
  - Cardiac hypertrophy [Fatal]
  - Hyperhidrosis [Unknown]
  - Dry mouth [Unknown]
  - Diarrhoea [Unknown]
  - Hypersensitivity [Unknown]
  - Intentional product misuse [Unknown]
  - Fatigue [Unknown]
  - Cardiac arrest [Fatal]
  - Arrhythmia [Unknown]
  - Cough [Unknown]

NARRATIVE: CASE EVENT DATE: 20150918
